FAERS Safety Report 20779844 (Version 2)
Quarter: 2022Q2

REPORT INFORMATION
  Report Type: Spontaneous
  Country: US (occurrence: US)
  Receive Date: 20220503
  Receipt Date: 20220601
  Transmission Date: 20220721
  Serious: Yes (Other)
  Sender: FDA-Public Use
  Company Number: US-AMERICAN REGENT INC-2022001190

PATIENT
  Age: 35 Year
  Sex: Female
  Weight: 64.5 kg

DRUGS (2)
  1. VENOFER [Suspect]
     Active Substance: IRON SUCROSE
     Indication: Iron deficiency anaemia
     Dosage: UNK, SINGLE
     Route: 065
     Dates: start: 20220308, end: 20220308
  2. VENOFER [Suspect]
     Active Substance: IRON SUCROSE
     Indication: Anaemia
     Dosage: 400 MILLIGRAM AT 112ML/HR
     Route: 042
     Dates: start: 20220415, end: 20220415

REACTIONS (5)
  - Burning sensation [Recovered/Resolved]
  - Drug hypersensitivity [Recovered/Resolved]
  - Chest discomfort [Recovered/Resolved]
  - Blood pressure increased [Recovered/Resolved]
  - Angioedema [Recovered/Resolved]

NARRATIVE: CASE EVENT DATE: 20220415
